FAERS Safety Report 6823429-0 (Version None)
Quarter: 2010Q3

REPORT INFORMATION
  Report Type: 
  Country: None (occurrence: None)
  Receive Date: 20100708
  Receipt Date: 20100623
  Transmission Date: 20110219
  Serious: Yes (Hospitalization, Disabling, Other)
  Sender: FDA-Public Use
  Company Number: PHHY2008JP21007

PATIENT
  Sex: Female
  Weight: 44 kg

DRUGS (6)
  1. ZOMETA [Suspect]
     Indication: METASTASES TO BONE
     Dosage: 4 MG, QMO
     Route: 042
     Dates: start: 20080529, end: 20080818
  2. AREDIA [Suspect]
     Indication: METASTASES TO BONE
     Dosage: 90 MG ONCE
     Route: 042
     Dates: start: 20060501, end: 20060501
  3. FARMORUBICIN [Concomitant]
     Indication: BREAST CANCER
     Dosage: UNK
     Route: 042
     Dates: start: 20060627, end: 20070514
  4. ENDOXAN [Concomitant]
     Indication: BREAST CANCER
     Dosage: UNK
     Route: 042
     Dates: start: 20060627, end: 20070514
  5. FLUOROURACIL [Concomitant]
     Indication: BREAST CANCER
     Dosage: UNK
     Route: 042
     Dates: start: 20060627, end: 20070514
  6. TAXOTERE [Concomitant]
     Indication: BREAST CANCER
     Dosage: UNK
     Route: 042
     Dates: start: 20070604, end: 20080825

REACTIONS (11)
  - BONE DISORDER [None]
  - C-REACTIVE PROTEIN INCREASED [None]
  - CARDIAC FAILURE [None]
  - INFECTION [None]
  - JAW OPERATION [None]
  - OSTEOMYELITIS [None]
  - OSTEONECROSIS OF JAW [None]
  - PAIN IN JAW [None]
  - PRIMARY SEQUESTRUM [None]
  - PURULENCE [None]
  - TOOTH EXTRACTION [None]
